FAERS Safety Report 18850532 (Version 2)
Quarter: 2021Q2

REPORT INFORMATION
  Report Type: Spontaneous
  Country: CN (occurrence: CN)
  Receive Date: 20210204
  Receipt Date: 20210413
  Transmission Date: 20210717
  Serious: Yes (Death, Hospitalization, Other)
  Sender: FDA-Public Use
  Company Number: NVSC2021CN021874

PATIENT
  Age: 51 Year
  Sex: Male
  Weight: 67 kg

DRUGS (4)
  1. TAFINLAR [Suspect]
     Active Substance: DABRAFENIB MESYLATE
     Indication: MALIGNANT MELANOMA
     Dosage: 150 MG, BID
     Route: 048
     Dates: start: 20170822
  2. INSULIN [Concomitant]
     Active Substance: INSULIN NOS
     Indication: DIABETES MELLITUS
     Route: 065
  3. MEKINIST [Suspect]
     Active Substance: TRAMETINIB DIMETHYL SULFOXIDE
     Indication: MALIGNANT MELANOMA
     Dosage: 2 MG, QD
     Route: 048
     Dates: start: 20170822
  4. ACARBOSE. [Concomitant]
     Active Substance: ACARBOSE
     Indication: DIABETES MELLITUS
     Route: 048

REACTIONS (13)
  - Malignant melanoma [Fatal]
  - Abdominal pain [Recovering/Resolving]
  - Pulmonary embolism [Recovered/Resolved]
  - Gastrointestinal wall thickening [Unknown]
  - Intestinal obstruction [Recovering/Resolving]
  - Mass [Unknown]
  - Adrenal insufficiency [Unknown]
  - Metastases to gastrointestinal tract [Unknown]
  - Syncope [Unknown]
  - Malignant neoplasm progression [Fatal]
  - Blood pressure decreased [Unknown]
  - Abdominal adhesions [Unknown]
  - Hypercholesterolaemia [Unknown]

NARRATIVE: CASE EVENT DATE: 2017
